FAERS Safety Report 5411611-9 (Version None)
Quarter: 2007Q3

REPORT INFORMATION
  Report Type: 
  Country: None (occurrence: None)
  Receive Date: 20070810
  Receipt Date: 20070731
  Transmission Date: 20080115
  Serious: Yes (Hospitalization)
  Sender: FDA-Public Use
  Company Number: US-PFIZER INC-2007064141

PATIENT
  Age: 74 Year
  Sex: Female
  Weight: 77.1 kg

DRUGS (4)
  1. LIPITOR [Suspect]
     Indication: BLOOD CHOLESTEROL
  2. EXTRA STRENGTH TYLENOL [Suspect]
     Indication: SLEEP DISORDER THERAPY
     Dosage: TEXT:2 DOSE(S)-FREQ:AS NECESSARY
     Route: 048
  3. ZESTRIL [Concomitant]
  4. ACETYLSALICYLIC ACID SRT [Concomitant]

REACTIONS (2)
  - CHOLELITHIASIS [None]
  - HEPATIC ENZYME INCREASED [None]
